FAERS Safety Report 20405236 (Version 2)
Quarter: 2022Q1

REPORT INFORMATION
  Report Type: Report from Study
  Country: IT (occurrence: IT)
  Receive Date: 20220131
  Receipt Date: 20220215
  Transmission Date: 20220423
  Serious: Yes (Other)
  Sender: FDA-Public Use
  Company Number: IT-TAKEDA-2022TUS006033

PATIENT
  Age: 23 Year
  Sex: Male

DRUGS (27)
  1. ADVATE [Suspect]
     Active Substance: ANTIHEMOPHILIC FACTOR, HUMAN RECOMBINANT
     Indication: Haematoma muscle
     Dosage: 3000 INTERNATIONAL UNIT, BID
     Route: 065
     Dates: start: 20150615, end: 20150616
  2. ADVATE [Suspect]
     Active Substance: ANTIHEMOPHILIC FACTOR, HUMAN RECOMBINANT
     Indication: Haematoma muscle
     Dosage: 3000 INTERNATIONAL UNIT, BID
     Route: 065
     Dates: start: 20150615, end: 20150616
  3. ADVATE [Suspect]
     Active Substance: ANTIHEMOPHILIC FACTOR, HUMAN RECOMBINANT
     Indication: Haematoma muscle
     Dosage: 3000 INTERNATIONAL UNIT, BID
     Route: 065
     Dates: start: 20150615, end: 20150616
  4. ADVATE [Suspect]
     Active Substance: ANTIHEMOPHILIC FACTOR, HUMAN RECOMBINANT
     Indication: Joint swelling
     Dosage: 3000 INTERNATIONAL UNIT, QD
     Route: 065
     Dates: start: 20150617, end: 20150618
  5. ADVATE [Suspect]
     Active Substance: ANTIHEMOPHILIC FACTOR, HUMAN RECOMBINANT
     Indication: Joint swelling
     Dosage: 3000 INTERNATIONAL UNIT, QD
     Route: 065
     Dates: start: 20150617, end: 20150618
  6. ADVATE [Suspect]
     Active Substance: ANTIHEMOPHILIC FACTOR, HUMAN RECOMBINANT
     Indication: Joint swelling
     Dosage: 3000 INTERNATIONAL UNIT, QD
     Route: 065
     Dates: start: 20150617, end: 20150618
  7. ADVATE [Suspect]
     Active Substance: ANTIHEMOPHILIC FACTOR, HUMAN RECOMBINANT
     Indication: Ligament sprain
     Dosage: 3000 INTERNATIONAL UNIT, Q2WEEKS
     Route: 065
     Dates: start: 20150619, end: 20150624
  8. ADVATE [Suspect]
     Active Substance: ANTIHEMOPHILIC FACTOR, HUMAN RECOMBINANT
     Indication: Ligament sprain
     Dosage: 3000 INTERNATIONAL UNIT, Q2WEEKS
     Route: 065
     Dates: start: 20150619, end: 20150624
  9. ADVATE [Suspect]
     Active Substance: ANTIHEMOPHILIC FACTOR, HUMAN RECOMBINANT
     Indication: Ligament sprain
     Dosage: 3000 INTERNATIONAL UNIT, Q2WEEKS
     Route: 065
     Dates: start: 20150619, end: 20150624
  10. ADVATE [Suspect]
     Active Substance: ANTIHEMOPHILIC FACTOR, HUMAN RECOMBINANT
     Indication: Synovitis
     Dosage: 3000 INTERNATIONAL UNIT, QD
     Route: 065
     Dates: start: 20150924, end: 20150925
  11. ADVATE [Suspect]
     Active Substance: ANTIHEMOPHILIC FACTOR, HUMAN RECOMBINANT
     Indication: Synovitis
     Dosage: 3000 INTERNATIONAL UNIT, QD
     Route: 065
     Dates: start: 20150924, end: 20150925
  12. ADVATE [Suspect]
     Active Substance: ANTIHEMOPHILIC FACTOR, HUMAN RECOMBINANT
     Indication: Synovitis
     Dosage: 3000 INTERNATIONAL UNIT, QD
     Route: 065
     Dates: start: 20150924, end: 20150925
  13. ADVATE [Suspect]
     Active Substance: ANTIHEMOPHILIC FACTOR, HUMAN RECOMBINANT
     Dosage: 3000 INTERNATIONAL UNIT, QD
     Route: 065
     Dates: start: 20180326, end: 20180327
  14. ADVATE [Suspect]
     Active Substance: ANTIHEMOPHILIC FACTOR, HUMAN RECOMBINANT
     Dosage: 3000 INTERNATIONAL UNIT, QD
     Route: 065
     Dates: start: 20180326, end: 20180327
  15. ADVATE [Suspect]
     Active Substance: ANTIHEMOPHILIC FACTOR, HUMAN RECOMBINANT
     Dosage: 3000 INTERNATIONAL UNIT, QD
     Route: 065
     Dates: start: 20180326, end: 20180327
  16. ADVATE [Suspect]
     Active Substance: ANTIHEMOPHILIC FACTOR, HUMAN RECOMBINANT
     Dosage: 3000 INTERNATIONAL UNIT, QD
     Route: 065
     Dates: start: 20181007, end: 20181007
  17. ADVATE [Suspect]
     Active Substance: ANTIHEMOPHILIC FACTOR, HUMAN RECOMBINANT
     Dosage: 3000 INTERNATIONAL UNIT, QD
     Route: 065
     Dates: start: 20181007, end: 20181007
  18. ADVATE [Suspect]
     Active Substance: ANTIHEMOPHILIC FACTOR, HUMAN RECOMBINANT
     Dosage: 3000 INTERNATIONAL UNIT, QD
     Route: 065
     Dates: start: 20181007, end: 20181007
  19. ADVATE [Suspect]
     Active Substance: ANTIHEMOPHILIC FACTOR, HUMAN RECOMBINANT
     Dosage: 3000 INTERNATIONAL UNIT, QD
     Route: 065
     Dates: start: 20181008, end: 20181008
  20. ADVATE [Suspect]
     Active Substance: ANTIHEMOPHILIC FACTOR, HUMAN RECOMBINANT
     Dosage: 3000 INTERNATIONAL UNIT, QD
     Route: 065
     Dates: start: 20181008, end: 20181008
  21. ADVATE [Suspect]
     Active Substance: ANTIHEMOPHILIC FACTOR, HUMAN RECOMBINANT
     Dosage: 3000 INTERNATIONAL UNIT, QD
     Route: 065
     Dates: start: 20181008, end: 20181008
  22. ADVATE [Suspect]
     Active Substance: ANTIHEMOPHILIC FACTOR, HUMAN RECOMBINANT
     Dosage: 3000 INTERNATIONAL UNIT, QD
     Route: 065
     Dates: start: 20190508, end: 20190508
  23. ADVATE [Suspect]
     Active Substance: ANTIHEMOPHILIC FACTOR, HUMAN RECOMBINANT
     Dosage: 3000 INTERNATIONAL UNIT, QD
     Route: 065
     Dates: start: 20190508, end: 20190508
  24. ADVATE [Suspect]
     Active Substance: ANTIHEMOPHILIC FACTOR, HUMAN RECOMBINANT
     Dosage: 3000 INTERNATIONAL UNIT, QD
     Route: 065
     Dates: start: 20190508, end: 20190508
  25. ADVATE [Suspect]
     Active Substance: ANTIHEMOPHILIC FACTOR, HUMAN RECOMBINANT
     Dosage: 3000 INTERNATIONAL UNIT, QD
     Route: 065
     Dates: start: 20190913, end: 20190913
  26. ADVATE [Suspect]
     Active Substance: ANTIHEMOPHILIC FACTOR, HUMAN RECOMBINANT
     Dosage: 3000 INTERNATIONAL UNIT, QD
     Route: 065
     Dates: start: 20190913, end: 20190913
  27. ADVATE [Suspect]
     Active Substance: ANTIHEMOPHILIC FACTOR, HUMAN RECOMBINANT
     Dosage: 3000 INTERNATIONAL UNIT, QD
     Route: 065
     Dates: start: 20190913, end: 20190913

REACTIONS (1)
  - Haematoma muscle [Recovered/Resolved]

NARRATIVE: CASE EVENT DATE: 20150615
